FAERS Safety Report 5147431-2 (Version None)
Quarter: 2006Q4

REPORT INFORMATION
  Report Type: 
  Country: None (occurrence: None)
  Receive Date: 20061109
  Receipt Date: 20061030
  Transmission Date: 20070319
  Serious: Yes (Death)
  Sender: FDA-Public Use
  Company Number: US-ABBOTT-06P-163-0349491-00

PATIENT
  Age: 63 Year

DRUGS (9)
  1. ACETAMINOPHEN/HYDROCODONE [Suspect]
     Indication: DRUG USE FOR UNKNOWN INDICATION
     Dosage: ASPIRATED
  2. ACETAMINOPHEN/HYDROCODONE [Suspect]
     Dosage: INGESTION
     Route: 048
  3. ACETAMINOPHEN [Suspect]
     Indication: DRUG USE FOR UNKNOWN INDICATION
     Dosage: ASPIRATED
  4. ACETAMINOPHEN [Suspect]
     Dosage: INGESTION
     Route: 048
  5. CODEINE [Suspect]
     Indication: DRUG USE FOR UNKNOWN INDICATION
     Dosage: ASPIRATED
  6. CODEINE [Suspect]
     Dosage: INGESTION
     Route: 048
  7. CODEINE [Suspect]
  8. OLANZAPINE [Suspect]
     Indication: DRUG USE FOR UNKNOWN INDICATION
     Dosage: ASPIRATED
  9. OLANZAPINE [Suspect]
     Dosage: INGESTION
     Route: 048

REACTIONS (1)
  - COMPLETED SUICIDE [None]
